FAERS Safety Report 10667512 (Version 2)
Quarter: 2014Q4

REPORT INFORMATION
  Report Type: Spontaneous
  Country: US (occurrence: US)
  Receive Date: 20141222
  Receipt Date: 20141222
  Transmission Date: 20150529
  Serious: No
  Sender: FDA-Public Use
  Company Number: US-MYLANLABS-2014M1008286

PATIENT
  Age: 62 Year
  Sex: Female
  Weight: 79.82 kg

DRUGS (7)
  1. CALTRATE 600+D3 [Concomitant]
     Dosage: UNK
  2. ATORVASTATIN CALCIUM TABLETS [Suspect]
     Active Substance: ATORVASTATIN CALCIUM
     Indication: BLOOD CHOLESTEROL INCREASED
     Dosage: 10 MG, HS
     Route: 048
     Dates: start: 20130313, end: 20141023
  3. OCUVITE ADULT 50+                  /06822201/ [Concomitant]
     Dosage: UNK
  4. ALKA SELTZER FRUIT CHEWS [Concomitant]
     Dosage: UNK
  5. ZANTAC [Concomitant]
     Active Substance: RANITIDINE HYDROCHLORIDE
     Dosage: UNK
  6. ONE A DAY ADVANCE ADULTS 50+ [Concomitant]
     Dosage: UNK
  7. ALEVE PM [Concomitant]
     Active Substance: DIPHENHYDRAMINE HYDROCHLORIDE\NAPROXEN SODIUM
     Dosage: UNK

REACTIONS (3)
  - Dysgeusia [Not Recovered/Not Resolved]
  - Nausea [Not Recovered/Not Resolved]
  - Abdominal pain upper [Recovered/Resolved]

NARRATIVE: CASE EVENT DATE: 20141017
